FAERS Safety Report 5286562-3 (Version None)
Quarter: 2007Q2

REPORT INFORMATION
  Report Type: 
  Country: None (occurrence: None)
  Receive Date: 20070404
  Receipt Date: 20070323
  Transmission Date: 20071010
  Serious: Yes (Other)
  Sender: FDA-Public Use
  Company Number: CN-ROCHE-489791

PATIENT
  Age: 27 Year
  Sex: Male

DRUGS (1)
  1. PEGASYS [Suspect]
     Indication: HEPATITIS B
     Dosage: ROUTE: HYPO. FORM: INJECTION.
     Route: 050
     Dates: start: 20060715

REACTIONS (1)
  - LIVER DISORDER [None]
